FAERS Safety Report 6540042-3 (Version None)
Quarter: 2010Q1

REPORT INFORMATION
  Report Type: 
  Country: None (occurrence: None)
  Receive Date: 20100115
  Receipt Date: 20100111
  Transmission Date: 20100710
  Serious: Yes (Death, Other)
  Sender: FDA-Public Use
  Company Number: US-CELGENEUS-163-21880-09121867

PATIENT
  Sex: Male

DRUGS (5)
  1. REVLIMID [Suspect]
     Indication: MULTIPLE MYELOMA
     Route: 048
     Dates: start: 20090601, end: 20090101
  2. REVLIMID [Suspect]
     Route: 048
     Dates: start: 20090301, end: 20090501
  3. REVLIMID [Suspect]
     Route: 048
     Dates: start: 20081201, end: 20081201
  4. REVLIMID [Suspect]
     Route: 048
     Dates: start: 20080901, end: 20080901
  5. REVLIMID [Suspect]
     Route: 048
     Dates: start: 20080101, end: 20080401

REACTIONS (2)
  - BACTERIAL SEPSIS [None]
  - DEEP VEIN THROMBOSIS [None]
